FAERS Safety Report 21016880 (Version 5)
Quarter: 2023Q1

REPORT INFORMATION
  Report Type: Spontaneous
  Country: US (occurrence: US)
  Receive Date: 20220628
  Receipt Date: 20230228
  Transmission Date: 20230417
  Serious: No
  Sender: FDA-Public Use
  Company Number: US-LUPIN PHARMACEUTICALS INC.-2022-08979

PATIENT

DRUGS (1)
  1. ALBUTEROL SULFATE [Suspect]
     Active Substance: ALBUTEROL SULFATE
     Indication: Product used for unknown indication
     Dosage: UNK

REACTIONS (9)
  - Dyspnoea [Unknown]
  - Wheezing [Unknown]
  - Palpitations [Unknown]
  - Oropharyngeal pain [Unknown]
  - Product preparation error [Unknown]
  - Product substitution issue [Unknown]
  - Device delivery system issue [Unknown]
  - Device breakage [Unknown]
  - Product taste abnormal [Unknown]
